FAERS Safety Report 18294185 (Version 5)
Quarter: 2020Q4

REPORT INFORMATION
  Report Type: Report from Study
  Country: IN (occurrence: IN)
  Receive Date: 20200922
  Receipt Date: 20201201
  Transmission Date: 20210113
  Serious: Yes (Hospitalization)
  Sender: FDA-Public Use
  Company Number: IN-KARYOPHARM THERAPEUTICS, INC.-2020KPT001097

PATIENT
  Age: 67 Year
  Sex: Male
  Weight: 73 kg

DRUGS (14)
  1. PANTOPRAZOLE [Concomitant]
     Active Substance: PANTOPRAZOLE
     Indication: PEPTIC ULCER
     Dosage: 40 MG, QD
     Route: 048
     Dates: start: 20170830
  2. SODIUM PICOSULPHATE [Concomitant]
     Active Substance: SODIUM PICOSULFATE
     Indication: CONSTIPATION
     Dosage: 300 MG, PRN
     Route: 048
     Dates: start: 20190424
  3. MEGESTROL [Concomitant]
     Active Substance: MEGESTROL
     Indication: WEIGHT DECREASED
     Dosage: 160 MG, QD
     Route: 048
     Dates: start: 20200722
  4. DEXAMETHASONE. [Suspect]
     Active Substance: DEXAMETHASONE
     Dosage: 10 MG, 2X/WEEK
     Dates: start: 20200831, end: 20200914
  5. DEXAMETHASONE. [Suspect]
     Active Substance: DEXAMETHASONE
     Indication: PLASMA CELL MYELOMA
     Dosage: 20 MG, 4X/WEEK
     Route: 048
     Dates: start: 20180529, end: 20191224
  6. VALACYCLOVIR [Concomitant]
     Active Substance: VALACYCLOVIR HYDROCHLORIDE
     Indication: ORAL HERPES
     Dosage: 500 MG, QOD
     Route: 048
     Dates: start: 20170830
  7. TRAMADOL. [Concomitant]
     Active Substance: TRAMADOL
     Indication: PAIN
     Dosage: 10 MG, PRN
     Route: 048
     Dates: start: 20180824
  8. DEXAMETHASONE. [Suspect]
     Active Substance: DEXAMETHASONE
     Dosage: 12 MG, 2X/WEEK
     Dates: start: 20200128, end: 20200831
  9. SULFAMETHOXAZOLE AND TRIMETHOPRIM [Concomitant]
     Active Substance: SULFAMETHOXAZOLE\TRIMETHOPRIM
     Indication: BACTERIAL INFECTION
     Dosage: 5 MG, 3X/WEEK
     Route: 048
     Dates: start: 20170830
  10. SELINEXOR [Suspect]
     Active Substance: SELINEXOR
     Dosage: 80 MG, WEEKLY
     Dates: start: 20200204, end: 20200831
  11. DEXAMETHASONE. [Suspect]
     Active Substance: DEXAMETHASONE
     Dosage: 20 MG, 2X/WEEK
     Dates: start: 20191224, end: 20200128
  12. SELINEXOR [Suspect]
     Active Substance: SELINEXOR
     Indication: PLASMA CELL MYELOMA
     Dosage: 80 MG, WEEKLY
     Route: 048
     Dates: start: 20191224, end: 20200128
  13. FERROUS FUMARATE [Concomitant]
     Active Substance: FERROUS FUMARATE
     Indication: IRON DEFICIENCY
     Dosage: 1 DF, QD
     Route: 048
     Dates: start: 20200121
  14. SELINEXOR [Suspect]
     Active Substance: SELINEXOR
     Dosage: 60 MG, WEEKLY
     Dates: start: 20200831, end: 20200914

REACTIONS (1)
  - Pneumonia [Recovered/Resolved]

NARRATIVE: CASE EVENT DATE: 20200911
